FAERS Safety Report 6239806-5 (Version None)
Quarter: 2009Q2

REPORT INFORMATION
  Report Type: 
  Country: None (occurrence: None)
  Receive Date: 20090618
  Receipt Date: 20090618
  Transmission Date: 20091009
  Serious: Yes (Other)
  Sender: FDA-Public Use
  Company Number: None

PATIENT
  Age: 37 Year
  Sex: Female
  Weight: 86.1834 kg

DRUGS (1)
  1. CYMBALTA [Suspect]
     Dates: start: 20090519, end: 20090616

REACTIONS (6)
  - ANXIETY [None]
  - CAPSULE ISSUE [None]
  - DEPRESSION [None]
  - HEART RATE INCREASED [None]
  - IRRITABILITY [None]
  - WITHDRAWAL SYNDROME [None]
